FAERS Safety Report 7513766-9 (Version None)
Quarter: 2011Q2

REPORT INFORMATION
  Report Type: 
  Country: None (occurrence: None)
  Receive Date: 20110531
  Receipt Date: 20110505
  Transmission Date: 20111010
  Serious: Yes (Other)
  Sender: FDA-Public Use
  Company Number: US-BAYER-2011-016325

PATIENT
  Sex: Female
  Weight: 63.492 kg

DRUGS (10)
  1. YAZ [Suspect]
     Indication: OVARIAN CYST
     Dosage: 1 TAB / DAY
     Dates: start: 20030101, end: 20060101
  2. SYNTHROID [Concomitant]
     Dosage: UNK
     Dates: start: 20020101
  3. ATIVAN [Concomitant]
     Route: 048
  4. YAZ [Suspect]
     Indication: PREMENSTRUAL SYNDROME
  5. YASMIN [Suspect]
     Indication: OVARIAN CYST
     Dosage: 1 TAB / DAY
     Dates: start: 20030101, end: 20060101
  6. LEVOXYL [Concomitant]
     Dosage: 125 MCG/24HR, UNK
  7. YASMIN [Suspect]
     Indication: PREMENSTRUAL SYNDROME
  8. THYROID TAB [Concomitant]
     Dosage: UNK
     Dates: start: 20020101
  9. IBUPROFEN [Concomitant]
  10. NEXIUM [Concomitant]

REACTIONS (2)
  - CHOLECYSTITIS [None]
  - ABDOMINAL PAIN [None]
